FAERS Safety Report 5337738-8 (Version None)
Quarter: 2007Q2

REPORT INFORMATION
  Report Type: 
  Country: None (occurrence: None)
  Receive Date: 20070308
  Receipt Date: 20070125
  Transmission Date: 20071010
  Serious: No
  Sender: FDA-Public Use
  Company Number: 2006-BP-14252BP

PATIENT
  Age: 59 Year
  Sex: Male

DRUGS (3)
  1. SPIRIVA [Suspect]
     Indication: CHRONIC OBSTRUCTIVE PULMONARY DISEASE
     Dosage: 18 MCG (18 MCG), IH
     Route: 025
     Dates: start: 20051201
  2. SPIRIVA [Suspect]
  3. ADVAIR DISKUS 100/50 [Concomitant]

REACTIONS (1)
  - FEELING ABNORMAL [None]
